FAERS Safety Report 24395594 (Version 1)
Quarter: 2024Q4

REPORT INFORMATION
  Report Type: Spontaneous
  Country: JP (occurrence: JP)
  Receive Date: 20241004
  Receipt Date: 20241004
  Transmission Date: 20250114
  Serious: Yes (Death, Other)
  Sender: ROCHE
  Company Number: JP-CHUGAI-2024033548

PATIENT
  Age: 69 Year
  Sex: Male

DRUGS (2)
  1. ACTEMRA [Suspect]
     Active Substance: TOCILIZUMAB
     Indication: VEXAS syndrome
     Dosage: UNK
     Route: 065
  2. METHYLPREDNISOLONE [Concomitant]
     Active Substance: METHYLPREDNISOLONE
     Indication: VEXAS syndrome
     Dosage: UNK
     Route: 065

REACTIONS (4)
  - Acute respiratory failure [Fatal]
  - Circulatory collapse [Fatal]
  - Disseminated tuberculosis [Unknown]
  - Off label use [Unknown]
